FAERS Safety Report 8591456-1 (Version None)
Quarter: 2012Q3

REPORT INFORMATION
  Report Type: 
  Country: None (occurrence: None)
  Receive Date: 20120814
  Receipt Date: 20120807
  Transmission Date: 20120928
  Serious: Yes (Other)
  Sender: FDA-Public Use
  Company Number: BR-SHIRE-SPV1-2012-00539

PATIENT
  Sex: Male
  Weight: 20.4 kg

DRUGS (7)
  1. ELAPRASE [Suspect]
     Indication: MUCOPOLYSACCHARIDOSIS II
     Dosage: 2 DF, 1X/WEEK
     Route: 041
     Dates: start: 20120530
  2. ELAPRASE [Suspect]
     Dosage: UNK, UNKNOWN
     Route: 041
     Dates: start: 20120801
  3. SELENIUM [Concomitant]
     Indication: HYPOVITAMINOSIS
     Dosage: 1 ML, 1X/DAY:QD
     Route: 065
  4. ELAPRASE [Suspect]
     Dosage: 2 DF, 1X/WEEK
     Route: 041
     Dates: start: 20120606
  5. ELAPRASE [Suspect]
     Dosage: 2 DF, 1X/WEEK
     Route: 041
     Dates: start: 20100530
  6. ELAPRASE [Suspect]
     Dosage: 0.5 MG/KG, UNKNOWN
     Route: 041
     Dates: start: 20120329
  7. ELAPRASE [Suspect]
     Dosage: UNK, UNKNOWN
     Route: 041
     Dates: start: 20120627

REACTIONS (6)
  - TREMOR [None]
  - INFUSION RELATED REACTION [None]
  - CHILLS [None]
  - PYREXIA [None]
  - FEELING COLD [None]
  - HEADACHE [None]
